FAERS Safety Report 7020320-4 (Version None)
Quarter: 2010Q3

REPORT INFORMATION
  Report Type: 
  Country: None (occurrence: None)
  Receive Date: 20100929
  Receipt Date: 20100923
  Transmission Date: 20110219
  Serious: Yes (Life-Threatening)
  Sender: FDA-Public Use
  Company Number: FR-WYE-G06377410

PATIENT
  Sex: Male

DRUGS (10)
  1. EFFEXOR XR [Suspect]
     Indication: MAJOR DEPRESSION
     Route: 064
  2. NUCTALON [Suspect]
     Route: 064
  3. SERESTA [Suspect]
     Route: 064
     Dates: end: 20100101
  4. VASTAREL [Concomitant]
     Route: 064
  5. NOCERTONE [Concomitant]
     Indication: MIGRAINE
     Dosage: UNKNOWN
     Route: 064
  6. IKARAN [Concomitant]
     Indication: MIGRAINE
     Route: 064
  7. PRAXINOR [Concomitant]
     Route: 064
  8. ESBERIVEN [Concomitant]
     Route: 064
  9. RIVOTRIL [Suspect]
     Route: 064
  10. KARDEGIC [Concomitant]
     Dosage: UNKNOWN
     Route: 064

REACTIONS (9)
  - APPARENT DEATH [None]
  - CRYING [None]
  - DRUG WITHDRAWAL SYNDROME NEONATAL [None]
  - GASTROINTESTINAL DISORDER [None]
  - HYPERTONIA NEONATAL [None]
  - HYPOTONIA NEONATAL [None]
  - INFANTILE APNOEIC ATTACK [None]
  - PREMATURE BABY [None]
  - TREMOR NEONATAL [None]
